FAERS Safety Report 14586755 (Version 2)
Quarter: 2019Q2

REPORT INFORMATION
  Report Type: Report from Study
  Country: DE (occurrence: DE)
  Receive Date: 20180301
  Receipt Date: 20190514
  Transmission Date: 20190711
  Serious: Yes (Hospitalization, Other)
  Sender: FDA-Public Use
  Company Number: DE-PFIZER INC-2018078190

PATIENT
  Sex: Female
  Weight: 77 kg

DRUGS (8)
  1. HUMIRA [Suspect]
     Active Substance: ADALIMUMAB
     Dosage: UNK
  2. EPLERENONE. [Concomitant]
     Active Substance: EPLERENONE
     Route: 048
  3. HUMIRA [Suspect]
     Active Substance: ADALIMUMAB
     Indication: PSORIATIC ARTHROPATHY
     Dosage: 40 MG, EVERY 5 WEEKS
     Route: 058
     Dates: start: 20170825, end: 20171207
  4. METHOTREXATE SODIUM. [Suspect]
     Active Substance: METHOTREXATE SODIUM
     Indication: PRODUCT USED FOR UNKNOWN INDICATION
     Dosage: UNK
     Route: 065
     Dates: start: 20010101, end: 20180104
  5. HUMIRA [Suspect]
     Active Substance: ADALIMUMAB
     Indication: PSORIATIC ARTHROPATHY
     Dosage: 40 MG, EVERY 14 DAYS
     Route: 058
     Dates: start: 20060406, end: 20151201
  6. HUMIRA [Suspect]
     Active Substance: ADALIMUMAB
     Dosage: 40 MG, EVERY 28 DAYS
     Route: 058
     Dates: start: 20160201, end: 20161007
  7. ATORVASTATIN [Concomitant]
     Active Substance: ATORVASTATIN
     Indication: PRODUCT USED FOR UNKNOWN INDICATION
     Dosage: UNK
     Dates: start: 20170901
  8. RAMIPRIL. [Concomitant]
     Active Substance: RAMIPRIL
     Indication: PRODUCT USED FOR UNKNOWN INDICATION
     Dosage: UNK
     Dates: start: 20170901

REACTIONS (27)
  - Stress [Unknown]
  - Loss of consciousness [Not Recovered/Not Resolved]
  - Ventricular fibrillation [Not Recovered/Not Resolved]
  - Fatigue [Not Recovered/Not Resolved]
  - Toothache [Not Recovered/Not Resolved]
  - Gastric disorder [Not Recovered/Not Resolved]
  - Syncope [Not Recovered/Not Resolved]
  - Procedural dizziness [Not Recovered/Not Resolved]
  - Impaired healing [Recovering/Resolving]
  - Blood pressure decreased [Recovering/Resolving]
  - Tremor [Recovered/Resolved]
  - Tension [Unknown]
  - Weight decreased [Recovering/Resolving]
  - Gingivitis [Not Recovered/Not Resolved]
  - Sinus tachycardia [Unknown]
  - Cardiac failure [Not Recovered/Not Resolved]
  - Nausea [Not Recovered/Not Resolved]
  - Blood pressure decreased [Recovered/Resolved]
  - Cardiac flutter [Recovered/Resolved]
  - Abdominal pain upper [Not Recovered/Not Resolved]
  - Arrhythmia [Not Recovered/Not Resolved]
  - Poor quality sleep [Unknown]
  - Bone disorder [Not Recovered/Not Resolved]
  - Jaw disorder [Not Recovered/Not Resolved]
  - Cardiac disorder [Unknown]
  - Procedural hypotension [Not Recovered/Not Resolved]
  - Dizziness [Not Recovered/Not Resolved]

NARRATIVE: CASE EVENT DATE: 20090101
